FAERS Safety Report 4884278-6 (Version None)
Quarter: 2005Q4

REPORT INFORMATION
  Report Type: 
  Country: None (occurrence: None)
  Receive Date: 20051201
  Receipt Date: 20050912
  Transmission Date: 20060501
  Serious: No
  Sender: FDA-Public Use
  Company Number: 2005PV002023

PATIENT
  Age: 38 Year
  Sex: Male

DRUGS (7)
  1. BYETTA [Suspect]
     Indication: DIABETES MELLITUS NON-INSULIN-DEPENDENT
     Dosage: 5 MCG; BID; SC
     Route: 058
     Dates: start: 20050908
  2. VERAPAMIL [Concomitant]
  3. BLOOD GLUOSE [Concomitant]
  4. MEDICATION [Concomitant]
  5. BLOOD PRESSURE [Concomitant]
  6. MEDICATION [Concomitant]
  7. LIPID MEDICATION [Concomitant]

REACTIONS (3)
  - BLOOD GLUCOSE INCREASED [None]
  - FEELING ABNORMAL [None]
  - HEADACHE [None]
